FAERS Safety Report 5764804-5 (Version None)
Quarter: 2008Q2

REPORT INFORMATION
  Report Type: 
  Country: None (occurrence: None)
  Receive Date: 20080605
  Receipt Date: 20080530
  Transmission Date: 20081010
  Serious: Yes (Hospitalization)
  Sender: FDA-Public Use
  Company Number: 2008SP010401

PATIENT
  Age: 51 Year
  Sex: Male

DRUGS (2)
  1. PEG-INTRON [Suspect]
     Indication: HEPATITIS C
     Dosage: ; SC
     Route: 058
     Dates: start: 20080321
  2. RIBAVIRIN [Suspect]
     Indication: HEPATITIS C
     Dosage: ; PO
     Route: 048
     Dates: start: 20080321

REACTIONS (3)
  - ABASIA [None]
  - STAPHYLOCOCCAL INFECTION [None]
  - THROMBOSIS [None]
